FAERS Safety Report 16260698 (Version 1)
Quarter: 2019Q2

REPORT INFORMATION
  Report Type: Spontaneous
  Country: IN (occurrence: IN)
  Receive Date: 20190501
  Receipt Date: 20190501
  Transmission Date: 20190711
  Serious: Yes (Death)
  Sender: FDA-Public Use
  Company Number: IN-PFIZER INC-2019182106

PATIENT
  Age: 35 Year
  Sex: Female

DRUGS (11)
  1. FENTANYL. [Concomitant]
     Active Substance: FENTANYL
     Dosage: UNK, (75)
  2. AMIODARONE HCL [Suspect]
     Active Substance: AMIODARONE HYDROCHLORIDE
     Indication: CIRCULATORY COLLAPSE
  3. NOREPINEPHRINE. [Concomitant]
     Active Substance: NOREPINEPHRINE
     Dosage: UNK, (4?G/MIN)
  4. TRENAXA [Concomitant]
     Active Substance: TRANEXAMIC ACID
     Indication: CHOLECYSTECTOMY
     Dosage: 350 MG, UNK
     Route: 037
  5. DIAZEPAM. [Concomitant]
     Active Substance: DIAZEPAM
     Indication: SEIZURE
     Dosage: 10 MG, UNK
     Route: 042
  6. AMIODARONE HCL [Suspect]
     Active Substance: AMIODARONE HYDROCHLORIDE
     Indication: ARRHYTHMIA
     Dosage: UNK
  7. LIGNOCAINE HCL [Suspect]
     Active Substance: LIDOCAINE HYDROCHLORIDE
     Indication: CIRCULATORY COLLAPSE
  8. ADRENALINE HCL [Concomitant]
     Active Substance: EPINEPHRINE HYDROCHLORIDE
     Dosage: 1 MG, UNK
     Route: 042
  9. VASOPRESSIN. [Concomitant]
     Active Substance: VASOPRESSIN
     Dosage: UNK, (0.03 IU/MIN, INFUSION)
  10. LIGNOCAINE HCL [Suspect]
     Active Substance: LIDOCAINE HYDROCHLORIDE
     Indication: ARRHYTHMIA
     Dosage: UNK
  11. MIDAZOLAM [Concomitant]
     Active Substance: MIDAZOLAM HYDROCHLORIDE
     Dosage: 2 MG, UNK

REACTIONS (1)
  - Drug ineffective [Fatal]
